FAERS Safety Report 10179123 (Version 1)
Quarter: 2014Q2

REPORT INFORMATION
  Report Type: Spontaneous
  Country: US (occurrence: None)
  Receive Date: 20140515
  Receipt Date: 20140515
  Transmission Date: 20141212
  Serious: Yes (Other)
  Sender: FDA-Public Use
  Company Number: 2014P1003918

PATIENT
  Age: 28 Year
  Sex: Female

DRUGS (3)
  1. MYORISAN [Suspect]
     Indication: ACNE
     Route: 048
     Dates: start: 20140304, end: 20140420
  2. NOVOLOG [Concomitant]
  3. HORMONE CONTRACEPTIVE INJECTION [Concomitant]

REACTIONS (2)
  - Headache [None]
  - Depression [None]
